FAERS Safety Report 12000627 (Version 2)
Quarter: 2016Q1

REPORT INFORMATION
  Report Type: Spontaneous
  Country: US (occurrence: US)
  Receive Date: 20160204
  Receipt Date: 20160209
  Transmission Date: 20160526
  Serious: No
  Sender: FDA-Public Use
  Company Number: US-PFIZER INC-2016059847

PATIENT
  Age: 91 Year
  Sex: Female
  Weight: 51 kg

DRUGS (1)
  1. XALATAN [Suspect]
     Active Substance: LATANOPROST
     Indication: MACULAR DEGENERATION
     Dosage: 1 DF EACH EYE, EVERY NIGHT
     Route: 047
     Dates: start: 201511

REACTIONS (4)
  - Diplopia [Recovered/Resolved]
  - Visual impairment [Recovered/Resolved]
  - Product quality issue [Unknown]
  - Product use issue [Unknown]

NARRATIVE: CASE EVENT DATE: 201511
